FAERS Safety Report 9679121 (Version 1)
Quarter: 2013Q4

REPORT INFORMATION
  Report Type: Spontaneous
  Country: DE (occurrence: None)
  Receive Date: 20131107
  Receipt Date: 20131107
  Transmission Date: 20140711
  Serious: Yes (Life-Threatening, Hospitalization, Other)
  Sender: FDA-Public Use
  Company Number: DAV-AE-LOR-13-08

PATIENT
  Age: 57 Year
  Sex: 0

DRUGS (2)
  1. LORAZEPAM [Suspect]
     Indication: SCHIZOAFFECTIVE DISORDER
     Dosage: 6 MG/ DAY; SEE NARRATIVE
  2. VALPROIC ACID [Concomitant]

REACTIONS (6)
  - Hyperammonaemic encephalopathy [None]
  - Drug withdrawal syndrome [None]
  - Psychomotor hyperactivity [None]
  - Somnolence [None]
  - Stupor [None]
  - Overdose [None]
